FAERS Safety Report 5751795-6 (Version None)
Quarter: 2008Q2

REPORT INFORMATION
  Report Type: 
  Country: None (occurrence: None)
  Receive Date: 20080527
  Receipt Date: 20080207
  Transmission Date: 20081010
  Serious: Yes (Other)
  Sender: FDA-Public Use
  Company Number: 2008BI003288

PATIENT
  Age: 61 Year
  Sex: Female

DRUGS (1)
  1. AVONEX [Suspect]
     Indication: MULTIPLE SCLEROSIS
     Dosage: 30 UG; QW; IM
     Route: 030
     Dates: start: 20021101

REACTIONS (10)
  - BLADDER DISORDER [None]
  - BRONCHIECTASIS [None]
  - DIZZINESS [None]
  - LUNG NEOPLASM [None]
  - PNEUMONIA [None]
  - PROGRESSIVE MULTIPLE SCLEROSIS [None]
  - PSEUDOMONAS INFECTION [None]
  - RENAL DISORDER [None]
  - TREMOR [None]
  - WEIGHT DECREASED [None]
